FAERS Safety Report 5937445-4 (Version None)
Quarter: 2008Q4

REPORT INFORMATION
  Report Type: 
  Country: None (occurrence: None)
  Receive Date: 20081031
  Receipt Date: 20081022
  Transmission Date: 20090506
  Serious: Yes (Other)
  Sender: FDA-Public Use
  Company Number: A0754312A

PATIENT
  Age: 27 Year
  Sex: Female

DRUGS (3)
  1. COMBIVIR [Suspect]
     Indication: VIRAL INFECTION
     Dosage: 3TAB PER DAY
     Route: 048
     Dates: start: 20080308
  2. BLINDED TRIAL MEDICATION [Suspect]
     Indication: VIRAL INFECTION
  3. NELFINAVIR [Concomitant]
     Indication: VIRAL INFECTION
     Route: 048
     Dates: start: 20080308, end: 20080926

REACTIONS (2)
  - ABORTION INDUCED [None]
  - DRUG EXPOSURE DURING PREGNANCY [None]
